FAERS Safety Report 13151066 (Version 1)
Quarter: 2017Q1

REPORT INFORMATION
  Report Type: Spontaneous
  Country: US (occurrence: US)
  Receive Date: 20170122
  Receipt Date: 20170122
  Transmission Date: 20170428
  Serious: No
  Sender: FDA-Public Use
  Company Number: None

PATIENT
  Age: 66 Year
  Sex: Male
  Weight: 60.75 kg

DRUGS (1)
  1. VARENICLINE [Suspect]
     Active Substance: VARENICLINE
     Indication: EX-TOBACCO USER
     Route: 048
     Dates: start: 20160101, end: 20160630

REACTIONS (3)
  - Depressed mood [None]
  - Agitation [None]
  - Nightmare [None]

NARRATIVE: CASE EVENT DATE: 20160101
